FAERS Safety Report 4559375-5 (Version None)
Quarter: 2005Q1

REPORT INFORMATION
  Report Type: 
  Country: None (occurrence: None)
  Receive Date: 20050124
  Receipt Date: 20050117
  Transmission Date: 20050727
  Serious: Yes (Hospitalization, Other)
  Sender: FDA-Public Use
  Company Number: US-GLAXOSMITHKLINE-A0540910A

PATIENT
  Age: 69 Year
  Sex: Female
  Weight: 56.8 kg

DRUGS (7)
  1. CITRUCEL SUGAR-FREE SUSPENSION ORANGE [Suspect]
     Route: 048
     Dates: start: 19950101
  2. CITRUCEL REGULAR SUSPENSION [Suspect]
  3. LISINOPRIL [Concomitant]
  4. LIPITOR [Concomitant]
  5. AMBIEN [Concomitant]
     Route: 048
  6. STOOL SOFTENER [Concomitant]
     Indication: CONSTIPATION
  7. SENOKOT [Concomitant]
     Indication: CONSTIPATION
     Route: 048

REACTIONS (6)
  - ABDOMINAL PAIN UPPER [None]
  - BODY TEMPERATURE INCREASED [None]
  - BREAST CANCER [None]
  - DIVERTICULITIS [None]
  - INFECTION [None]
  - NIPPLE EXUDATE BLOODY [None]
